APPROVED DRUG PRODUCT: TIS-U-SOL IN PLASTIC CONTAINER
Active Ingredient: MAGNESIUM SULFATE; POTASSIUM CHLORIDE; POTASSIUM PHOSPHATE, MONOBASIC; SODIUM CHLORIDE; SODIUM PHOSPHATE
Strength: 20MG/100ML;40MG/100ML;6.25MG/100ML;800MG/100ML;8.75MG/100ML
Dosage Form/Route: SOLUTION;IRRIGATION
Application: N018336 | Product #001 | TE Code: AT
Applicant: BAXTER HEALTHCARE CORP
Approved: Approved Prior to Jan 1, 1982 | RLD: No | RS: No | Type: RX